FAERS Safety Report 25001798 (Version 1)
Quarter: 2025Q1

REPORT INFORMATION
  Report Type: Report from Study
  Country: CA (occurrence: CA)
  Receive Date: 20250224
  Receipt Date: 20250224
  Transmission Date: 20250408
  Serious: Yes (Other)
  Sender: CSL BEHRING
  Company Number: CA-BEH-2024177068

PATIENT
  Age: 61 Year
  Sex: Male
  Weight: 112.9 kg

DRUGS (6)
  1. HIZENTRA [Suspect]
     Active Substance: HUMAN IMMUNOGLOBULIN G
     Indication: Primary immunodeficiency syndrome
     Dosage: UNK UNK, QW (PRODUCT STRENGTH: 8 G)
     Route: 065
     Dates: start: 20240316
  2. AMLODIPINE BESYLATE [Concomitant]
     Active Substance: AMLODIPINE BESYLATE
  3. DOXYLAMINE [Concomitant]
     Active Substance: DOXYLAMINE
  4. HYDROXYCHLOROQUINE [Concomitant]
     Active Substance: HYDROXYCHLOROQUINE
  5. DUTASTERIDE [Concomitant]
     Active Substance: DUTASTERIDE
  6. VALTREX [Concomitant]
     Active Substance: VALACYCLOVIR HYDROCHLORIDE

REACTIONS (4)
  - Polyarthritis [Unknown]
  - Injection site inflammation [Unknown]
  - Injection site infection [Unknown]
  - Therapy interrupted [Unknown]
